FAERS Safety Report 17660953 (Version 3)
Quarter: 2020Q2

REPORT INFORMATION
  Report Type: Report from Study
  Country: US (occurrence: US)
  Receive Date: 20200413
  Receipt Date: 20200513
  Transmission Date: 20200713
  Serious: No
  Sender: FDA-Public Use
  Company Number: US-SA-2020SA090211

PATIENT
  Age: 77 Year
  Sex: Female

DRUGS (2)
  1. DUPILUMAB [Suspect]
     Active Substance: DUPILUMAB
     Indication: DERMATITIS ATOPIC
     Dosage: 600 MG, 1X
     Route: 058
     Dates: start: 20200228, end: 20200228
  2. DUPILUMAB [Suspect]
     Active Substance: DUPILUMAB
     Dosage: QOW
     Route: 058

REACTIONS (8)
  - Injection site pruritus [Not Recovered/Not Resolved]
  - Drug ineffective [Unknown]
  - Eye pain [Unknown]
  - Rash [Unknown]
  - Injection site rash [Unknown]
  - Injection site swelling [Not Recovered/Not Resolved]
  - Injection site erythema [Not Recovered/Not Resolved]
  - Eye swelling [Unknown]

NARRATIVE: CASE EVENT DATE: 2020
